FAERS Safety Report 4652014-4 (Version None)
Quarter: 2005Q2

REPORT INFORMATION
  Report Type: 
  Country: None (occurrence: None)
  Receive Date: 20050504
  Receipt Date: 20050314
  Transmission Date: 20051028
  Serious: Yes (Death)
  Sender: FDA-Public Use
  Company Number: GB-BOEHRINGER INGELHEIM PHARMACEUTICALS, INC.-2005-UK-00442UK

PATIENT
  Sex: Male

DRUGS (12)
  1. COMBIVENT [Suspect]
     Dosage: 2 PUFFS THREE TIMES DAILY
     Route: 055
  2. BECLOMETHASONE DIPROPIONATE [Suspect]
     Dosage: 2 PUFFS TWICE DAILY
     Route: 055
  3. ASPIRIN [Suspect]
  4. AMILORIDE HYDROCHLORIDE [Suspect]
  5. DIGOXIN [Suspect]
  6. DIGOXIN [Suspect]
  7. AMLODIPINE [Suspect]
  8. RAMIPRIL [Suspect]
  9. FUROSEMIDE [Suspect]
     Dosage: 2 ONCE DAILY
  10. SALMETEROL [Suspect]
     Dosage: 2 PUFFS TWICE DAILY
  11. SALMETEROL WITH FLUTICASONE [Suspect]
     Dosage: 1 PUFF TWICE DAILY
  12. NONE REPORTED [Concomitant]

REACTIONS (2)
  - CARDIAC FAILURE CONGESTIVE [None]
  - CHRONIC OBSTRUCTIVE PULMONARY DISEASE [None]
